FAERS Safety Report 8022253-3 (Version None)
Quarter: 2011Q4

REPORT INFORMATION
  Report Type: 
  Country: None (occurrence: None)
  Receive Date: 20111230
  Receipt Date: 20111217
  Transmission Date: 20120403
  Serious: Yes (Hospitalization)
  Sender: FDA-Public Use
  Company Number: 2011AP003083

PATIENT
  Age: 49 Year
  Sex: Male

DRUGS (3)
  1. AMLODIPINE BESYLATE [Suspect]
     Indication: PRODUCT USED FOR UNKNOWN INDICATION
     Dosage: 600 MG
  2. CLONAZEPAM [Suspect]
     Indication: PRODUCT USED FOR UNKNOWN INDICATION
     Dosage: 60 MG
  3. TRAMADOL HYDROCHLORIDE [Suspect]
     Indication: PRODUCT USED FOR UNKNOWN INDICATION
     Dosage: 500 MG

REACTIONS (8)
  - NODAL RHYTHM [None]
  - RESPIRATORY FAILURE [None]
  - NON-CARDIOGENIC PULMONARY OEDEMA [None]
  - MULTIPLE DRUG OVERDOSE INTENTIONAL [None]
  - BRADYCARDIA [None]
  - HYPOXIA [None]
  - RENAL FAILURE ACUTE [None]
  - HYPOTENSION [None]
